FAERS Safety Report 5142417-6 (Version None)
Quarter: 2006Q4

REPORT INFORMATION
  Report Type: 
  Country: None (occurrence: None)
  Receive Date: 20061102
  Receipt Date: 20031013
  Transmission Date: 20070319
  Serious: Yes (Other)
  Sender: FDA-Public Use
  Company Number: US-ELI_LILLY_AND_COMPANY-US200610003102

PATIENT
  Age: 82 Year
  Sex: Female

DRUGS (7)
  1. FORTEO [Suspect]
     Indication: OSTEOPOROSIS
     Dosage: UNK, UNK
     Dates: start: 20051201
  2. CALCIUM [Concomitant]
     Dosage: 1500 MG, DAILY (1/D)
  3. VITAMIN D [Concomitant]
     Dosage: 2000 IU, DAILY (1/D)
  4. PLAVIX                                  /UNK/ [Concomitant]
     Indication: ANTICOAGULANT THERAPY
  5. COZAAR [Concomitant]
     Dosage: UNK, DAILY (1/D)
  6. PROCRIT [Concomitant]
  7. NEUROTON [Concomitant]

REACTIONS (8)
  - BLOOD CALCIUM INCREASED [None]
  - CALCINOSIS [None]
  - CALCIPHYLAXIS [None]
  - EARLY MORNING AWAKENING [None]
  - NEOPLASM [None]
  - PAIN [None]
  - PHARMACEUTICAL PRODUCT COMPLAINT [None]
  - PRURITUS [None]
